FAERS Safety Report 11964926 (Version 4)
Quarter: 2016Q1

REPORT INFORMATION
  Report Type: Spontaneous
  Country: US (occurrence: US)
  Receive Date: 20160127
  Receipt Date: 20160317
  Transmission Date: 20160526
  Serious: No
  Sender: FDA-Public Use
  Company Number: US-009507513-1601USA009196

PATIENT
  Age: 28 Year
  Sex: Female
  Weight: 156.46 kg

DRUGS (4)
  1. NEXPLANON [Suspect]
     Active Substance: ETONOGESTREL
     Indication: CONTRACEPTION
     Dosage: 1 EA, ONCE, LEFT ARM
     Route: 059
     Dates: start: 20130130, end: 20160119
  2. CHOLECALCIFEROL [Concomitant]
     Active Substance: CHOLECALCIFEROL
     Dosage: 1 TABLET, QD
     Route: 048
  3. NEXPLANON [Suspect]
     Active Substance: ETONOGESTREL
     Dosage: UNK, LEFT ARM
     Route: 059
     Dates: start: 20160119, end: 20160125
  4. NEXIUM [Concomitant]
     Active Substance: ESOMEPRAZOLE MAGNESIUM
     Dosage: 40 MG(1 CAPSULE), QD
     Route: 048

REACTIONS (10)
  - Implant site induration [Recovered/Resolved]
  - Pain in extremity [Unknown]
  - Implant site pain [Unknown]
  - Weight increased [Unknown]
  - Device expulsion [Recovered/Resolved]
  - Implant site pustules [Recovered/Resolved]
  - Oligomenorrhoea [Unknown]
  - Implant site erythema [Recovered/Resolved]
  - Implant site infection [Recovered/Resolved]
  - Device difficult to use [Recovered/Resolved]

NARRATIVE: CASE EVENT DATE: 201601
